FAERS Safety Report 6044788-5 (Version None)
Quarter: 2009Q1

REPORT INFORMATION
  Report Type: 
  Country: None (occurrence: None)
  Receive Date: 20090120
  Receipt Date: 20090113
  Transmission Date: 20090719
  Serious: Yes (Hospitalization)
  Sender: FDA-Public Use
  Company Number: JP-ASTRAZENECA-2008AP09250

PATIENT
  Age: 74 Year
  Sex: Male

DRUGS (2)
  1. CASODEX [Suspect]
     Indication: PROSTATE CANCER
     Dosage: ADMINISTERED FOR ABOUT ONE AND HALF YEARS
     Route: 048
  2. ESTROGEN AND GESTAGEN PREPARATIONS [Suspect]
     Indication: PROSTATE CANCER
     Route: 065

REACTIONS (1)
  - CARDIAC FAILURE [None]
